FAERS Safety Report 9765920 (Version 1)
Quarter: 2013Q4

REPORT INFORMATION
  Report Type: Spontaneous
  Country: US (occurrence: US)
  Receive Date: 20131217
  Receipt Date: 20131217
  Transmission Date: 20140711
  Serious: No
  Sender: FDA-Public Use
  Company Number: US-BIOGENIDEC-2013BI112010

PATIENT
  Age: 71 Year
  Sex: Female
  Weight: 54 kg

DRUGS (9)
  1. TECFIDERA [Suspect]
     Indication: MULTIPLE SCLEROSIS
     Route: 048
     Dates: start: 20130707
  2. AMPYRA [Concomitant]
     Route: 048
     Dates: start: 2011, end: 201309
  3. LIPITOR [Concomitant]
  4. FOSAMAX [Concomitant]
  5. BACLOFEN [Concomitant]
  6. DETROL LA [Concomitant]
  7. CALCIUM [Concomitant]
  8. VITAMIN D [Concomitant]
  9. PREMARIN [Concomitant]

REACTIONS (5)
  - Pain of skin [Not Recovered/Not Resolved]
  - Gait disturbance [Not Recovered/Not Resolved]
  - Back pain [Recovered/Resolved]
  - Skin warm [Not Recovered/Not Resolved]
  - Hot flush [Not Recovered/Not Resolved]
